FAERS Safety Report 5544188-8 (Version None)
Quarter: 2007Q4

REPORT INFORMATION
  Report Type: 
  Country: None (occurrence: None)
  Receive Date: 20071210
  Receipt Date: 20061126
  Transmission Date: 20080405
  Serious: No
  Sender: FDA-Public Use
  Company Number: US-AMGEN-KDL201404

PATIENT
  Sex: Female

DRUGS (2)
  1. ENBREL [Suspect]
     Indication: RHEUMATOID ARTHRITIS
     Route: 058
     Dates: start: 20030501
  2. METHOTREXATE [Concomitant]

REACTIONS (5)
  - APHTHOUS STOMATITIS [None]
  - EPISTAXIS [None]
  - NASAL DISCOMFORT [None]
  - NASAL DRYNESS [None]
  - SCAB [None]
